FAERS Safety Report 19714986 (Version 1)
Quarter: 2021Q3

REPORT INFORMATION
  Report Type: Report from Study
  Country: IN (occurrence: IN)
  Receive Date: 20210818
  Receipt Date: 20210818
  Transmission Date: 20211014
  Serious: Yes (Other)
  Sender: FDA-Public Use
  Company Number: NVSC2021IN181877

PATIENT
  Age: 48 Year
  Sex: Female

DRUGS (3)
  1. SPEXIB [Suspect]
     Active Substance: CERITINIB
     Dosage: 300 MG, BID
     Route: 065
     Dates: start: 20200818, end: 20201005
  2. SPEXIB [Suspect]
     Active Substance: CERITINIB
     Indication: NON-SMALL CELL LUNG CANCER
     Dosage: 450 MG, BID
     Route: 065
     Dates: start: 20200520, end: 20200817
  3. SPEXIB [Suspect]
     Active Substance: CERITINIB
     Dosage: 450 MG, BID
     Route: 065
     Dates: start: 20201006, end: 20210712

REACTIONS (1)
  - Hepatitis B [Unknown]

NARRATIVE: CASE EVENT DATE: 20210712
